FAERS Safety Report 21561675 (Version 4)
Quarter: 2023Q2

REPORT INFORMATION
  Report Type: Report from Study
  Country: US (occurrence: US)
  Receive Date: 20221107
  Receipt Date: 20230623
  Transmission Date: 20230722
  Serious: No
  Sender: FDA-Public Use
  Company Number: US-DSJP-DSU-2022-139953AA

PATIENT
  Sex: Female

DRUGS (2)
  1. PEXIDARTINIB [Suspect]
     Active Substance: PEXIDARTINIB
     Indication: Malignant connective tissue neoplasm
     Dosage: 200 MG, BID (1 CAPSULE IN MORNING, 2 CAPSULES AT NIGHT)
     Route: 065
     Dates: start: 2022, end: 202211
  2. PEXIDARTINIB [Suspect]
     Active Substance: PEXIDARTINIB
     Indication: Soft tissue sarcoma

REACTIONS (7)
  - Nausea [Unknown]
  - Vomiting [Unknown]
  - Abdominal pain [Unknown]
  - Product dose omission issue [Unknown]
  - Adverse drug reaction [Unknown]
  - Liver function test increased [Recovered/Resolved]
  - Oral surgery [Unknown]

NARRATIVE: CASE EVENT DATE: 20220101
